FAERS Safety Report 18621405 (Version 88)
Quarter: 2025Q3

REPORT INFORMATION
  Report Type: Report from Study
  Country: CO (occurrence: CO)
  Receive Date: 20201215
  Receipt Date: 20250918
  Transmission Date: 20251020
  Serious: Yes (Hospitalization, Disabling, Other)
  Sender: TAKEDA
  Company Number: CO-TAKEDA-CO202025229

PATIENT
  Age: 8 Year
  Sex: Male
  Weight: 31 kg

DRUGS (7)
  1. IDURSULFASE [Suspect]
     Active Substance: IDURSULFASE
     Indication: Mucopolysaccharidosis II
     Dosage: UNK UNK, 1/WEEK
     Dates: start: 20171114
  2. IDURSULFASE [Suspect]
     Active Substance: IDURSULFASE
     Dosage: 12 MILLIGRAM, 1/WEEK
  3. IDURSULFASE [Suspect]
     Active Substance: IDURSULFASE
     Dosage: 16.5 MILLIGRAM, 1/WEEK
  4. IDURSULFASE [Suspect]
     Active Substance: IDURSULFASE
     Dosage: 18 MILLIGRAM, Q2WEEKS
  5. IDURSULFASE [Suspect]
     Active Substance: IDURSULFASE
     Dosage: 18 MILLIGRAM, 1/WEEK
  6. IDURSULFASE [Suspect]
     Active Substance: IDURSULFASE
     Dosage: 15 MILLIGRAM, 1/WEEK
  7. IDURSULFASE [Suspect]
     Active Substance: IDURSULFASE
     Dosage: 15.5 MILLIGRAM, 1/WEEK

REACTIONS (63)
  - Pharyngitis [Unknown]
  - Toxic skin eruption [Recovered/Resolved]
  - Cellulitis [Not Recovered/Not Resolved]
  - Body height decreased [Recovering/Resolving]
  - Urticaria pigmentosa [Recovered/Resolved]
  - Urticarial vasculitis [Recovered/Resolved]
  - Wound complication [Not Recovered/Not Resolved]
  - Lip haemorrhage [Not Recovered/Not Resolved]
  - Wound haemorrhage [Recovering/Resolving]
  - General physical health deterioration [Recovering/Resolving]
  - Selective mutism [Unknown]
  - Suspected COVID-19 [Recovering/Resolving]
  - Pyrexia [Not Recovered/Not Resolved]
  - Psychomotor hyperactivity [Recovering/Resolving]
  - Aggression [Recovering/Resolving]
  - Pica [Not Recovered/Not Resolved]
  - Obstruction [Unknown]
  - Snoring [Not Recovered/Not Resolved]
  - Malaise [Recovering/Resolving]
  - Lacrimation increased [Not Recovered/Not Resolved]
  - Decreased appetite [Unknown]
  - Sensitivity to weather change [Unknown]
  - Prescribed underdose [Unknown]
  - Treatment noncompliance [Unknown]
  - Insurance issue [Unknown]
  - Insomnia [Recovering/Resolving]
  - Weight increased [Unknown]
  - Crying [Recovered/Resolved]
  - Generalised oedema [Recovering/Resolving]
  - Inflammation [Recovered/Resolved]
  - Skin injury [Recovering/Resolving]
  - Neck injury [Recovering/Resolving]
  - Skin lesion [Recovering/Resolving]
  - Screaming [Recovering/Resolving]
  - Body height increased [Unknown]
  - Poor venous access [Recovered/Resolved]
  - Infusion site pain [Recovered/Resolved]
  - Fall [Recovering/Resolving]
  - Influenza [Recovered/Resolved]
  - Lip injury [Not Recovered/Not Resolved]
  - Feeling of despair [Unknown]
  - Irritability [Unknown]
  - Product distribution issue [Unknown]
  - Product availability issue [Unknown]
  - Dose calculation error [Unknown]
  - Inappropriate schedule of product administration [Unknown]
  - Product dose omission issue [Unknown]
  - Incorrect dose administered [Unknown]
  - Pain [Recovered/Resolved]
  - Cardiac valve disease [Unknown]
  - Restlessness [Recovered/Resolved]
  - Infusion site injury [Recovered/Resolved]
  - Weight decreased [Unknown]
  - Product prescribing issue [Unknown]
  - Respiratory disorder [Unknown]
  - Discomfort [Not Recovered/Not Resolved]
  - Face oedema [Recovering/Resolving]
  - Diarrhoea [Recovering/Resolving]
  - Dyspnoea [Unknown]
  - Cough [Unknown]
  - Headache [Recovering/Resolving]
  - Vomiting [Recovering/Resolving]
  - Fatigue [Not Recovered/Not Resolved]

NARRATIVE: CASE EVENT DATE: 20200201
